FAERS Safety Report 6814647-6 (Version None)
Quarter: 2010Q3

REPORT INFORMATION
  Report Type: 
  Country: None (occurrence: None)
  Receive Date: 20100702
  Receipt Date: 20100625
  Transmission Date: 20110219
  Serious: Yes (Hospitalization, Other)
  Sender: FDA-Public Use
  Company Number: US-PFIZER INC-2010079925

PATIENT
  Sex: Female

DRUGS (7)
  1. SERTRALINE HCL [Suspect]
     Indication: DEPRESSION
     Dosage: UNK MG, 1X/DAY (LAST 5-6 MONTHS)
     Route: 048
  2. SERTRALINE HCL [Suspect]
     Indication: ANXIETY
  3. SERTRALINE HCL [Suspect]
     Indication: OBSESSIVE-COMPULSIVE DISORDER
  4. SYNTHROID [Concomitant]
     Indication: HYPERTHYROIDISM
     Dosage: 88 MG, 1X/DAY
     Route: 048
  5. TRAZODONE [Concomitant]
     Dosage: 100 MG, 2X/DAY
     Route: 048
  6. COREG [Concomitant]
     Indication: HYPERTENSION
     Dosage: 6.25 MG, 2X/DAY
     Route: 048
  7. ALISKIREN/VALSARTAN [Concomitant]
     Indication: HYPERTENSION
     Dosage: UNK
     Route: 048

REACTIONS (5)
  - ALOPECIA [None]
  - COELIAC DISEASE [None]
  - GALLBLADDER DISORDER [None]
  - LIVER DISORDER [None]
  - WRONG TECHNIQUE IN DRUG USAGE PROCESS [None]
